FAERS Safety Report 5844764-9 (Version None)
Quarter: 2008Q3

REPORT INFORMATION
  Report Type: 
  Country: None (occurrence: None)
  Receive Date: 20080814
  Receipt Date: 20080805
  Transmission Date: 20090109
  Serious: Yes (Other)
  Sender: FDA-Public Use
  Company Number: US-JNJFOC-20061006152

PATIENT
  Sex: Male
  Weight: 98.2 kg

DRUGS (5)
  1. RISPERDAL [Suspect]
     Indication: EXTRAPYRAMIDAL DISORDER
  2. RISPERDAL [Suspect]
     Indication: SCHIZOPHRENIA
  3. RISPERDAL [Suspect]
     Indication: MENTAL RETARDATION
  4. RISPERDAL [Suspect]
     Indication: INTERMITTENT EXPLOSIVE DISORDER
  5. RISPERDAL [Suspect]
     Indication: PERSONALITY DISORDER

REACTIONS (2)
  - TREMOR [None]
  - TYPE 2 DIABETES MELLITUS [None]
